FAERS Safety Report 19623027 (Version 1)
Quarter: 2021Q3

REPORT INFORMATION
  Report Type: Spontaneous
  Country: US (occurrence: US)
  Receive Date: 20210728
  Receipt Date: 20210728
  Transmission Date: 20211014
  Serious: Yes (Death)
  Sender: FDA-Public Use
  Company Number: US-AMNEAL PHARMACEUTICALS-2021-AMRX-02444

PATIENT
  Sex: Male

DRUGS (2)
  1. RYTARY [Suspect]
     Active Substance: CARBIDOPA\LEVODOPA
     Indication: PRODUCT USED FOR UNKNOWN INDICATION
     Dosage: 5 CAPSULES, DAILY (2 CAPS MORNING, 1 AT MIDDAY AND 2 AT EVENING)
     Route: 048
     Dates: start: 20210420
  2. RYTARY [Suspect]
     Active Substance: CARBIDOPA\LEVODOPA
     Dosage: 4 CAPSULES, DAILY (1 CAPS MORNING AND MIDDAY AND 2 AT EVENING)
     Route: 048

REACTIONS (2)
  - Adverse event [Fatal]
  - Weight decreased [Unknown]

NARRATIVE: CASE EVENT DATE: 2021
